FAERS Safety Report 7235272-1 (Version None)
Quarter: 2011Q1

REPORT INFORMATION
  Report Type: 
  Country: None (occurrence: None)
  Receive Date: 20110113
  Receipt Date: 20110113
  Transmission Date: 20110831
  Serious: Yes (Hospitalization)
  Sender: FDA-Public Use
  Company Number: None

PATIENT
  Age: 82 Year
  Sex: Male
  Weight: 85 kg

DRUGS (1)
  1. METHOCARBAMOL [Suspect]
     Indication: PAIN
     Dosage: 1000 MG TID PO
     Route: 048
     Dates: start: 20110104, end: 20110109

REACTIONS (1)
  - MENTAL STATUS CHANGES [None]
